FAERS Safety Report 9234915 (Version 1)
Quarter: 2013Q2

REPORT INFORMATION
  Report Type: Spontaneous
  Country: US (occurrence: US)
  Receive Date: 20130416
  Receipt Date: 20130416
  Transmission Date: 20140414
  Serious: No
  Sender: FDA-Public Use
  Company Number: US-BANPHARM-20120243

PATIENT
  Age: 46 Year
  Sex: Female
  Weight: 58.96 kg

DRUGS (4)
  1. ALEVE LIQUID GELS 220 MG [Suspect]
     Dosage: 220 MG, BID,
     Route: 048
     Dates: start: 20120924, end: 20121001
  2. ALLERGY MEDICATION [Concomitant]
  3. SUPPLEMENTS (MINERALS NOS, VITAMINS NOS) [Concomitant]
  4. IBUPROFEN UNKNOWN PRODUCT [Concomitant]
     Indication: MUSCULOSKELETAL PAIN

REACTIONS (1)
  - Drug ineffective [Unknown]
